FAERS Safety Report 5197213-0 (Version None)
Quarter: 2006Q4

REPORT INFORMATION
  Report Type: 
  Country: None (occurrence: None)
  Receive Date: 20061227
  Receipt Date: 20061212
  Transmission Date: 20070319
  Serious: Yes (Life-Threatening)
  Sender: FDA-Public Use
  Company Number: TNZIE200600143

PATIENT
  Age: 34 Year
  Sex: Male

DRUGS (10)
  1. INNOHEP [Suspect]
     Indication: THROMBOSIS PROPHYLAXIS
     Dosage: 3500 IU (ON DIALYSIS), INTRAVENOUS
     Route: 042
     Dates: start: 20061129, end: 20061201
  2. VENTOLIN [Concomitant]
  3. BECONASE [Concomitant]
  4. CA ACETATE (CALCIUM ACETATE) (TABLETS) [Concomitant]
  5. ENALAPRIL (ENALAPRIL) (TABLETS) [Concomitant]
  6. OROVITE (PARENTROVITE) (TABLETS) [Concomitant]
  7. BESOPROLOL [Concomitant]
  8. SNO-PRO DRINK [Concomitant]
  9. FOLIC ACID (FOLIC ACID) (TABLETS) [Concomitant]
  10. ARANESP [Concomitant]

REACTIONS (3)
  - CHEST DISCOMFORT [None]
  - FLUSHING [None]
  - TACHYCARDIA [None]
